FAERS Safety Report 7732180-4 (Version None)
Quarter: 2011Q3

REPORT INFORMATION
  Report Type: 
  Country: None (occurrence: None)
  Receive Date: 20110906
  Receipt Date: 20110815
  Transmission Date: 20111222
  Serious: No
  Sender: FDA-Public Use
  Company Number: US-AMGEN-USASP2011041425

PATIENT
  Age: 69 Year
  Sex: Female

DRUGS (3)
  1. SYNTHROID [Concomitant]
  2. PROLIA [Suspect]
     Indication: OSTEOPOROSIS POSTMENOPAUSAL
     Dosage: UNK UNK, Q6MO
     Dates: start: 20101001
  3. PREMPRO [Concomitant]

REACTIONS (1)
  - RASH PRURITIC [None]
